FAERS Safety Report 4567212-8 (Version None)
Quarter: 2005Q1

REPORT INFORMATION
  Report Type: 
  Country: None (occurrence: None)
  Receive Date: 20050201
  Receipt Date: 19990108
  Transmission Date: 20050727
  Serious: Yes (Death)
  Sender: FDA-Public Use
  Company Number: TH-GLAXOSMITHKLINE-B0369057A

PATIENT
  Age: 48 Year
  Sex: Female
  Weight: 56.5 kg

DRUGS (3)
  1. HYCAMTIN [Suspect]
     Indication: OVARIAN CANCER
     Dosage: 2MG PER DAY
     Route: 042
     Dates: start: 19981229, end: 19990102
  2. DEXAMETHASONE [Concomitant]
     Dates: start: 19981229, end: 19990102
  3. KYTRIL [Concomitant]
     Dates: start: 19981229, end: 19990102

REACTIONS (1)
  - SEPTIC SHOCK [None]
